FAERS Safety Report 5060817-X (Version None)
Quarter: 2006Q3

REPORT INFORMATION
  Report Type: 
  Country: None (occurrence: None)
  Receive Date: 20060725
  Receipt Date: 20060717
  Transmission Date: 20061208
  Serious: Yes (Death)
  Sender: FDA-Public Use
  Company Number: PHEH2006US09399

PATIENT
  Age: 12 Year
  Sex: Female

DRUGS (1)
  1. EXJADE [Suspect]
     Dosage: UNK, UNK
     Dates: start: 20060401

REACTIONS (2)
  - BACTERIAL SEPSIS [None]
  - MENINGITIS BACTERIAL [None]
